FAERS Safety Report 7784956-5 (Version None)
Quarter: 2011Q3

REPORT INFORMATION
  Report Type: 
  Country: None (occurrence: None)
  Receive Date: 20110928
  Receipt Date: 20110921
  Transmission Date: 20111222
  Serious: Yes (Hospitalization, Other)
  Sender: FDA-Public Use
  Company Number: US-RB-032288-11

PATIENT
  Age: 65 Year
  Sex: Male

DRUGS (4)
  1. SUBOXONE [Suspect]
     Indication: DRUG DEPENDENCE
     Route: 060
     Dates: start: 20110601, end: 20110701
  2. FENTANYL [Suspect]
     Indication: ANAESTHESIA
     Dosage: UNKNOWN
     Route: 042
     Dates: start: 20110801, end: 20110801
  3. VERSED [Suspect]
     Indication: ANAESTHESIA
     Dosage: UNKNOWN
     Route: 042
     Dates: start: 20110801, end: 20110801
  4. SUBOXONE [Suspect]
     Indication: DRUG DEPENDENCE
     Dosage: 2-3 MG DAILY
     Route: 060
     Dates: start: 20110701, end: 20110801

REACTIONS (4)
  - RENAL ARTERY OCCLUSION [None]
  - VOMITING [None]
  - WRONG TECHNIQUE IN DRUG USAGE PROCESS [None]
  - NAUSEA [None]
